FAERS Safety Report 8486227-0 (Version None)
Quarter: 2012Q3

REPORT INFORMATION
  Report Type: 
  Country: None (occurrence: None)
  Receive Date: 20120703
  Receipt Date: 20120622
  Transmission Date: 20120928
  Serious: Yes (Disabling, Other)
  Sender: FDA-Public Use
  Company Number: US-ELI_LILLY_AND_COMPANY-US201206008258

PATIENT
  Sex: Female

DRUGS (2)
  1. HUMALOG MIX 75/25 [Suspect]
     Indication: TYPE 2 DIABETES MELLITUS
     Dosage: 12 U, EACH MORNING
  2. HUMALOG MIX 75/25 [Suspect]
     Dosage: 10 U, EACH EVENING

REACTIONS (3)
  - MYOCARDIAL INFARCTION [None]
  - CONFUSIONAL STATE [None]
  - UNDERDOSE [None]
